FAERS Safety Report 26218912 (Version 1)
Quarter: 2025Q4

REPORT INFORMATION
  Report Type: Spontaneous
  Country: TW (occurrence: TW)
  Receive Date: 20251231
  Receipt Date: 20251231
  Transmission Date: 20260117
  Serious: Yes (Other)
  Sender: PFIZER
  Company Number: TW-PFIZER INC-202500253085

PATIENT
  Age: 55 Year
  Sex: Male

DRUGS (8)
  1. LORAZEPAM [Suspect]
     Active Substance: LORAZEPAM
     Indication: Analgesic therapy
     Dosage: UNK
  2. LORAZEPAM [Suspect]
     Active Substance: LORAZEPAM
     Indication: Insomnia
  3. ESTAZOLAM [Suspect]
     Active Substance: ESTAZOLAM
     Indication: Analgesic therapy
  4. ESTAZOLAM [Suspect]
     Active Substance: ESTAZOLAM
     Indication: Insomnia
  5. FLUDIAZEPAM [Suspect]
     Active Substance: FLUDIAZEPAM
     Indication: Analgesic therapy
     Dosage: UNK
  6. FLUDIAZEPAM [Suspect]
     Active Substance: FLUDIAZEPAM
     Indication: Insomnia
  7. CELECOXIB [Suspect]
     Active Substance: CELECOXIB
     Indication: Analgesic therapy
  8. CELECOXIB [Suspect]
     Active Substance: CELECOXIB
     Indication: Insomnia

REACTIONS (1)
  - Memory impairment [Unknown]
